FAERS Safety Report 14526848 (Version 1)
Quarter: 2018Q1

REPORT INFORMATION
  Report Type: Spontaneous
  Country: US (occurrence: US)
  Receive Date: 20180213
  Receipt Date: 20180213
  Transmission Date: 20180509
  Serious: Yes (Hospitalization)
  Sender: FDA-Public Use
  Company Number: US-ASTRAZENECA-2018SE16532

PATIENT
  Sex: Female

DRUGS (3)
  1. QVAR [Suspect]
     Active Substance: BECLOMETHASONE DIPROPIONATE
     Route: 065
  2. ALVESCO [Suspect]
     Active Substance: CICLESONIDE
     Dosage: 80 MG, ONE PUFF IN THE MORNING, ONE PUFF IN THE EVENING
     Route: 055
  3. ALVESCO [Suspect]
     Active Substance: CICLESONIDE
     Dosage: 160 MCG, ONE PUFF IN THE MORNING, ONE PUFF IN THE EVENING
     Route: 055

REACTIONS (4)
  - Wheezing [Unknown]
  - Nervousness [Unknown]
  - Feeling jittery [Unknown]
  - Dyspnoea [Unknown]
